FAERS Safety Report 8338150-X (Version None)
Quarter: 2012Q1

REPORT INFORMATION
  Report Type: 
  Country: None (occurrence: None)
  Receive Date: 20120329
  Receipt Date: 20111104
  Transmission Date: 20120608
  Serious: Yes (Other)
  Sender: FDA-Public Use
  Company Number: 2011US006827

PATIENT
  Age: 66 Year
  Sex: Male

DRUGS (19)
  1. POTASSIUM CHLORIDE [Concomitant]
  2. PRILOSEC [Concomitant]
  3. SULFASALAZINE [Concomitant]
  4. LASIX [Concomitant]
  5. PHENAZOPYRIDINE (PHENAZOPYRIDINE) [Concomitant]
  6. PREDNISONE TAB [Concomitant]
  7. LORATADINE [Concomitant]
  8. AMLODIPINE [Concomitant]
  9. ZOCOR [Concomitant]
  10. HYDROXYZINE [Concomitant]
  11. MIRALAX [Concomitant]
  12. COZAAR [Concomitant]
  13. INDOMETHACIN [Concomitant]
  14. AMEVIVE [Suspect]
     Indication: PSORIASIS
  15. AMEVIVE [Suspect]
     Indication: PSORIATIC ARTHROPATHY
  16. AMEVIVE [Suspect]
     Indication: RHEUMATOID ARTHRITIS
  17. CELEXA [Concomitant]
  18. COREG [Concomitant]
  19. TRAMADOL HCL [Concomitant]

REACTIONS (2)
  - NEUROENDOCRINE CARCINOMA OF THE SKIN [None]
  - OFF LABEL USE [None]
